FAERS Safety Report 9695913 (Version 1)
Quarter: 2013Q4

REPORT INFORMATION
  Report Type: Spontaneous
  Country: US (occurrence: None)
  Receive Date: 20131118
  Receipt Date: 20131118
  Transmission Date: 20140711
  Serious: No
  Sender: FDA-Public Use
  Company Number: None

PATIENT
  Age: 11 Year
  Sex: Male
  Weight: 43.09 kg

DRUGS (1)
  1. DAYTRANA [Suspect]
     Indication: ATTENTION DEFICIT/HYPERACTIVITY DISORDER
     Dosage: 1 PATCH  ONCE DAILY  APPLIED AS MEDICATED PATCH TO SKIN
     Dates: start: 201311

REACTIONS (4)
  - Sleep disorder [None]
  - Hallucination [None]
  - Incorrect dose administered [None]
  - Product substitution issue [None]
